FAERS Safety Report 21467318 (Version 5)
Quarter: 2023Q2

REPORT INFORMATION
  Report Type: Spontaneous
  Country: JP (occurrence: JP)
  Receive Date: 20221017
  Receipt Date: 20230604
  Transmission Date: 20230722
  Serious: Yes (Hospitalization, Other)
  Sender: FDA-Public Use
  Company Number: JP-JNJFOC-20221025863

PATIENT
  Age: 57 Year
  Sex: Male
  Weight: 56.7 kg

DRUGS (14)
  1. VELCADE [Suspect]
     Active Substance: BORTEZOMIB
     Indication: Primary amyloidosis
     Dosage: 3 MILLIGRAM, 1/WEEK
     Route: 058
     Dates: start: 20220106, end: 20220328
  2. DARATUMUMAB\HYALURONIDASE-FIHJ [Suspect]
     Active Substance: DARATUMUMAB\HYALURONIDASE-FIHJ
     Indication: Primary amyloidosis
     Dosage: 1800 MILLIGRAM, 1/WEEK
     Route: 058
     Dates: start: 20220106, end: 20220322
  3. MELPHALAN [Suspect]
     Active Substance: MELPHALAN
     Indication: Autologous haematopoietic stem cell transplant
     Dosage: 200 MILLIGRAM/SQ. METER, QD
     Route: 065
  4. CEFEPIME [Suspect]
     Active Substance: CEFEPIME HYDROCHLORIDE
     Indication: Febrile neutropenia
     Dosage: UNK
     Route: 042
     Dates: start: 20220514
  5. LENALIDOMIDE [Concomitant]
     Active Substance: LENALIDOMIDE
     Indication: Plasma cell myeloma
     Dosage: UNK
     Route: 048
  6. DEXAMETHASONE [Concomitant]
     Active Substance: DEXAMETHASONE
     Indication: Amyloidosis
     Dosage: UNK
     Route: 065
     Dates: start: 202201, end: 2022
  7. CYCLOPHOSPHAMIDE [Concomitant]
     Active Substance: CYCLOPHOSPHAMIDE
     Indication: Amyloidosis
     Dosage: UNK
     Route: 065
     Dates: start: 202201, end: 2022
  8. ACYCLOVIR [Concomitant]
     Active Substance: ACYCLOVIR
     Indication: Product used for unknown indication
     Dosage: UNK
     Route: 065
     Dates: start: 20220623
  9. SULFAMETHOXAZOLE\TRIMETHOPRIM [Concomitant]
     Active Substance: SULFAMETHOXAZOLE\TRIMETHOPRIM
     Indication: Product used for unknown indication
     Dosage: UNK
     Route: 065
     Dates: start: 20220623
  10. FLUCONAZOLE [Concomitant]
     Active Substance: FLUCONAZOLE
     Indication: Product used for unknown indication
     Dosage: UNK
     Route: 065
     Dates: start: 20220623
  11. LEVOFLOXACIN HEMIHYDRATE [Concomitant]
     Active Substance: LEVOFLOXACIN
     Indication: Product used for unknown indication
     Dosage: UNK
     Route: 065
     Dates: start: 20220623
  12. HUMAN IMMUNOGLOBULIN G [Concomitant]
     Active Substance: HUMAN IMMUNOGLOBULIN G
     Indication: Product used for unknown indication
     Dosage: 20 GRAM, QD
     Route: 042
     Dates: start: 20220628
  13. CYCLOPHOSPHAMIDE [Concomitant]
     Active Substance: CYCLOPHOSPHAMIDE
     Indication: Primary amyloidosis
     Dosage: UNK, 1/WEEK
     Route: 048
     Dates: start: 20220106, end: 20220328
  14. DECADRON [Concomitant]
     Active Substance: DEXAMETHASONE
     Indication: Primary amyloidosis
     Dosage: UNK
     Route: 048
     Dates: start: 202108, end: 2022

REACTIONS (4)
  - Engraftment syndrome [Recovering/Resolving]
  - Acute graft versus host disease [Recovered/Resolved]
  - Clostridium difficile colitis [Recovering/Resolving]
  - Febrile neutropenia [Recovering/Resolving]

NARRATIVE: CASE EVENT DATE: 20220514
